FAERS Safety Report 4389033-1 (Version None)
Quarter: 2004Q3

REPORT INFORMATION
  Report Type: 
  Country: None (occurrence: None)
  Receive Date: 20040702
  Receipt Date: 20030828
  Transmission Date: 20050211
  Serious: Yes (Hospitalization)
  Sender: FDA-Public Use
  Company Number: 200312585EU

PATIENT
  Age: 44 Year
  Sex: Male

DRUGS (12)
  1. ARAVA [Suspect]
     Indication: RHEUMATOID ARTHRITIS
     Route: 048
     Dates: start: 20010101, end: 20030522
  2. ORUDIS RETARD [Suspect]
     Indication: RHEUMATOID ARTHRITIS
     Route: 048
     Dates: end: 20030526
  3. IBUMETIN [Suspect]
     Indication: RHEUMATOID ARTHRITIS
     Dates: end: 20030526
  4. CLINDAMYCIN HCL [Suspect]
     Dates: start: 20030526, end: 20030603
  5. ZINACEF [Suspect]
     Dates: start: 20030501, end: 20030525
  6. CIPROXIN [Suspect]
     Route: 042
     Dates: start: 20030526, end: 20030603
  7. PENTOTHAL [Concomitant]
     Indication: ANAESTHESIA
  8. CELOCURIN [Concomitant]
     Indication: ANAESTHESIA
  9. LEPTANAL [Concomitant]
     Indication: ANAESTHESIA
  10. MARCAINE [Concomitant]
     Indication: ANAESTHESIA
  11. TRACRIUM [Concomitant]
     Indication: ANAESTHESIA
  12. FENTANYL ^ALPHARMA^ [Concomitant]
     Indication: ANAESTHESIA

REACTIONS (12)
  - ABDOMINAL DISTENSION [None]
  - ABDOMINAL PAIN [None]
  - ALANINE AMINOTRANSFERASE INCREASED [None]
  - APPENDICECTOMY [None]
  - ASPARTATE AMINOTRANSFERASE INCREASED [None]
  - BLOOD ALKALINE PHOSPHATASE INCREASED [None]
  - C-REACTIVE PROTEIN INCREASED [None]
  - INGUINAL HERNIA, OBSTRUCTIVE [None]
  - JAUNDICE [None]
  - PULMONARY CONGESTION [None]
  - PYREXIA [None]
  - SWELLING FACE [None]
